FAERS Safety Report 11225148 (Version 1)
Quarter: 2015Q2

REPORT INFORMATION
  Report Type: Spontaneous
  Country: US (occurrence: US)
  Receive Date: 20150629
  Receipt Date: 20150629
  Transmission Date: 20150821
  Serious: No
  Sender: FDA-Public Use
  Company Number: US-PFIZER INC-2015212783

PATIENT
  Age: 29 Year
  Sex: Male

DRUGS (3)
  1. NORCO [Concomitant]
     Active Substance: ACETAMINOPHEN\HYDROCODONE BITARTRATE
     Dosage: 10MG/3.5 EVERY 6 HOURS
  2. LYRICA [Suspect]
     Active Substance: PREGABALIN
     Dosage: 75 UNK, 2X/DAY
     Dates: start: 20150526
  3. ZANAFLEX [Concomitant]
     Active Substance: TIZANIDINE HYDROCHLORIDE
     Dosage: 4 MG, UNK

REACTIONS (5)
  - Rash pruritic [Unknown]
  - Skin discolouration [Unknown]
  - Abdominal distension [Unknown]
  - Hypersensitivity [Unknown]
  - Peripheral swelling [Unknown]
